FAERS Safety Report 8790519 (Version 1)
Quarter: 2012Q4

REPORT INFORMATION
  Report Type: Spontaneous
  Country: US (occurrence: None)
  Receive Date: 20120912
  Receipt Date: 20120912
  Transmission Date: 20130627
  Serious: Yes (Other)
  Sender: FDA-Public Use
  Company Number: None

PATIENT
  Age: 43 Year
  Sex: Female
  Weight: 73.94 kg

DRUGS (1)
  1. NASALCROM [Suspect]
     Indication: MULTIPLE ALLERGIES
     Dosage: 2 sprays every 4 to 6 hours nasal
     Route: 045
     Dates: start: 20120909, end: 20120911

REACTIONS (2)
  - Anosmia [None]
  - Ageusia [None]
